FAERS Safety Report 7340818-9 (Version None)
Quarter: 2011Q1

REPORT INFORMATION
  Report Type: 
  Country: None (occurrence: None)
  Receive Date: 20110309
  Receipt Date: 20110302
  Transmission Date: 20110831
  Serious: Yes (Disabling)
  Sender: FDA-Public Use
  Company Number: US-B.I. PHARMACEUTICALS,INC./RIDGEFIELD-2011-BP-06235PF

PATIENT
  Sex: Female
  Weight: 53.06 kg

DRUGS (7)
  1. XANAX [Suspect]
     Indication: ANXIETY
     Dosage: 3 MG
     Route: 048
  2. LYRICA [Suspect]
     Indication: CARDIAC VALVE DISEASE
  3. PRILOSEC [Concomitant]
  4. LYRICA [Suspect]
     Indication: FIBROMYALGIA
     Dosage: 225 MG
     Route: 048
     Dates: start: 20070101
  5. VERAPAMIL [Concomitant]
  6. CIMETIDINE [Concomitant]
  7. SPIRIVA [Suspect]
     Indication: ASTHMA
     Dosage: 18 MCG
     Route: 055

REACTIONS (4)
  - CARDIAC VALVE DISEASE [None]
  - MALAISE [None]
  - FIBROMYALGIA [None]
  - VITAMIN D DEFICIENCY [None]
